FAERS Safety Report 7262117-6 (Version None)
Quarter: 2011Q1

REPORT INFORMATION
  Report Type: 
  Country: None (occurrence: None)
  Receive Date: 20110130
  Receipt Date: 20101214
  Transmission Date: 20110831
  Serious: No
  Sender: FDA-Public Use
  Company Number: US-ABBOTT-10P-163-0691393-00

PATIENT
  Age: 48 Year
  Sex: Male

DRUGS (2)
  1. ACYCLOVIR [Concomitant]
     Indication: GENITAL HERPES
     Dosage: DAILY
     Route: 048
  2. HUMIRA [Suspect]
     Indication: PSORIASIS
     Dates: start: 20101101

REACTIONS (1)
  - FATIGUE [None]
